FAERS Safety Report 6166435-4 (Version None)
Quarter: 2009Q2

REPORT INFORMATION
  Report Type: 
  Country: None (occurrence: None)
  Receive Date: 20090422
  Receipt Date: 20090422
  Transmission Date: 20091009
  Serious: Yes (Death)
  Sender: FDA-Public Use
  Company Number: None

PATIENT

DRUGS (12)
  1. REVLIMID [Suspect]
     Indication: MYELODYSPLASTIC SYNDROME
     Dosage: 10MG 3 X / WEEK ORAL
     Route: 048
     Dates: start: 20070301, end: 20081001
  2. NORTRIPTYLINE HCL [Concomitant]
  3. FLUTICASONE PROPIONATE [Concomitant]
  4. METFORMIN HCL [Concomitant]
  5. DILTIAZEM [Concomitant]
  6. CARVEDILOL [Concomitant]
  7. LOVASTATIN [Concomitant]
  8. SPIRONOLACTONE [Concomitant]
  9. LOSARTAN POSTASSIUM [Concomitant]
  10. FUROSEMIDE [Concomitant]
  11. CITALOPRAM HYDROBROMIDE [Concomitant]
  12. DIGOXIN [Concomitant]

REACTIONS (1)
  - CARDIAC DISORDER [None]
